FAERS Safety Report 19650928 (Version 1)
Quarter: 2021Q3

REPORT INFORMATION
  Report Type: Report from Study
  Country: CA (occurrence: CA)
  Receive Date: 20210803
  Receipt Date: 20210803
  Transmission Date: 20211014
  Serious: Yes (Other)
  Sender: FDA-Public Use
  Company Number: CA-ALLERGAN-2127237US

PATIENT
  Sex: Female

DRUGS (19)
  1. ACTEMRA [Concomitant]
     Active Substance: TOCILIZUMAB
     Dosage: 8 MG/KG
     Route: 042
  2. BARICITINIB. [Concomitant]
     Active Substance: BARICITINIB
     Indication: PRODUCT USED FOR UNKNOWN INDICATION
     Route: 065
  3. CELEBREX [Concomitant]
     Active Substance: CELECOXIB
     Indication: PRODUCT USED FOR UNKNOWN INDICATION
     Dosage: 2 DF, QD
     Route: 048
  4. SILVER SULFADIAZINE. [Concomitant]
     Active Substance: SILVER SULFADIAZINE
     Indication: PRODUCT USED FOR UNKNOWN INDICATION
     Route: 065
  5. OXYCODONE [Suspect]
     Active Substance: OXYCODONE
     Indication: PRODUCT USED FOR UNKNOWN INDICATION
     Dosage: 5 MG, BID
     Route: 065
  6. ACTEMRA [Concomitant]
     Active Substance: TOCILIZUMAB
     Indication: PRODUCT USED FOR UNKNOWN INDICATION
     Dosage: UNK
     Route: 058
  7. VENTOLIN [Concomitant]
     Active Substance: ALBUTEROL SULFATE
     Indication: PRODUCT USED FOR UNKNOWN INDICATION
     Route: 055
  8. WELLBUTRIN [Concomitant]
     Active Substance: BUPROPION HYDROCHLORIDE
     Indication: PRODUCT USED FOR UNKNOWN INDICATION
     Dosage: 1 DF, QD
     Route: 065
  9. CODEINE [Suspect]
     Active Substance: CODEINE
     Indication: PRODUCT USED FOR UNKNOWN INDICATION
     Dosage: UNK
     Route: 065
  10. LORAZEPAM. [Suspect]
     Active Substance: LORAZEPAM
     Indication: PRODUCT USED FOR UNKNOWN INDICATION
     Dosage: 1 MG
     Route: 065
  11. PANTOPRAZOLE [Suspect]
     Active Substance: PANTOPRAZOLE
     Indication: PRODUCT USED FOR UNKNOWN INDICATION
     Dosage: 40 MG
     Route: 065
  12. ENBREL [Concomitant]
     Active Substance: ETANERCEPT
     Indication: PRODUCT USED FOR UNKNOWN INDICATION
     Dosage: 50 MG
     Route: 058
  13. METHOTREXATE. [Suspect]
     Active Substance: METHOTREXATE
     Indication: PRODUCT USED FOR UNKNOWN INDICATION
     Route: 065
  14. ONDANSETRON [Suspect]
     Active Substance: ONDANSETRON
     Indication: PRODUCT USED FOR UNKNOWN INDICATION
     Dosage: 8 MG
     Route: 065
  15. PREDNISONE. [Concomitant]
     Active Substance: PREDNISONE
     Indication: PRODUCT USED FOR UNKNOWN INDICATION
     Route: 065
  16. CITALOPRAM HYDROBROMIDE UNK [Suspect]
     Active Substance: CITALOPRAM HYDROBROMIDE
     Indication: PRODUCT USED FOR UNKNOWN INDICATION
     Dosage: 10 MG, QD
     Route: 065
  17. ADVAIR HFA [Concomitant]
     Active Substance: FLUTICASONE PROPIONATE\SALMETEROL XINAFOATE
     Indication: PRODUCT USED FOR UNKNOWN INDICATION
     Route: 055
  18. ANAKINRA [Concomitant]
     Active Substance: ANAKINRA
     Indication: PRODUCT USED FOR UNKNOWN INDICATION
     Route: 065
  19. TOFACITINIB [Concomitant]
     Active Substance: TOFACITINIB
     Indication: PRODUCT USED FOR UNKNOWN INDICATION
     Route: 065

REACTIONS (41)
  - Balance disorder [Unknown]
  - Spinal pain [Unknown]
  - Abdominal pain [Unknown]
  - Bronchial hyperreactivity [Unknown]
  - Eye swelling [Unknown]
  - Facial pain [Unknown]
  - Injection site reaction [Unknown]
  - Neck pain [Unknown]
  - Peripheral swelling [Unknown]
  - Tumour necrosis factor receptor-associated periodic syndrome [Unknown]
  - Ulcerative keratitis [Unknown]
  - Vision blurred [Unknown]
  - Cough [Unknown]
  - Discomfort [Unknown]
  - Fine motor skill dysfunction [Unknown]
  - Lymphadenopathy [Unknown]
  - Bone pain [Unknown]
  - Tachycardia [Unknown]
  - C-reactive protein increased [Unknown]
  - Headache [Unknown]
  - Muscle spasms [Unknown]
  - Decreased appetite [Unknown]
  - Chest pain [Unknown]
  - Myalgia [Unknown]
  - Vomiting [Unknown]
  - Lip swelling [Unknown]
  - Joint swelling [Unknown]
  - Nervousness [Unknown]
  - Pain in extremity [Unknown]
  - Epistaxis [Unknown]
  - Conjunctivitis [Unknown]
  - Nausea [Unknown]
  - Delirium [Unknown]
  - Limb discomfort [Unknown]
  - Memory impairment [Unknown]
  - Nasal ulcer [Unknown]
  - Skin discolouration [Unknown]
  - Diarrhoea [Unknown]
  - Drug ineffective [Unknown]
  - Depression [Unknown]
  - Arthralgia [Unknown]
